FAERS Safety Report 15134508 (Version 2)
Quarter: 2018Q3

REPORT INFORMATION
  Report Type: Spontaneous
  Country: US (occurrence: US)
  Receive Date: 20180712
  Receipt Date: 20180822
  Transmission Date: 20181010
  Serious: No
  Sender: FDA-Public Use
  Company Number: US-GLAXOSMITHKLINE-US2018120660

PATIENT
  Age: 50 Year
  Sex: Female

DRUGS (1)
  1. NICODERM CQ [Suspect]
     Active Substance: NICOTINE
     Indication: SMOKING CESSATION THERAPY
     Dosage: 21 MG, UNK

REACTIONS (8)
  - Dermatitis contact [Unknown]
  - Pruritus [Unknown]
  - Medication error [Unknown]
  - Blister [Unknown]
  - Skin abrasion [Unknown]
  - Skin burning sensation [Unknown]
  - Paraesthesia [Unknown]
  - Product quality issue [Unknown]
